FAERS Safety Report 17697058 (Version 3)
Quarter: 2020Q2

REPORT INFORMATION
  Report Type: Spontaneous
  Country: US (occurrence: US)
  Receive Date: 20200423
  Receipt Date: 20200611
  Transmission Date: 20200714
  Serious: No
  Sender: FDA-Public Use
  Company Number: US-BIOGEN-2020BI00861829

PATIENT
  Age: 55 Year
  Sex: Female

DRUGS (1)
  1. TYSABRI [Suspect]
     Active Substance: NATALIZUMAB
     Indication: MULTIPLE SCLEROSIS
     Route: 065
     Dates: start: 20191101

REACTIONS (8)
  - Multiple sclerosis relapse [Unknown]
  - Inappropriate schedule of product administration [Not Recovered/Not Resolved]
  - Hypertension [Unknown]
  - Fear [Unknown]
  - Anxiety [Unknown]
  - Pyrexia [Unknown]
  - Product dose omission [Not Recovered/Not Resolved]
  - Tremor [Unknown]

NARRATIVE: CASE EVENT DATE: 202003
